FAERS Safety Report 26000375 (Version 1)
Quarter: 2025Q4

REPORT INFORMATION
  Report Type: Spontaneous
  Country: RU (occurrence: RU)
  Receive Date: 20251105
  Receipt Date: 20251105
  Transmission Date: 20260118
  Serious: Yes (Other)
  Sender: TERSERA THERAPEUTICS
  Company Number: RU-ASTRAZENECA-202510EAF028945RU

PATIENT

DRUGS (2)
  1. GOSERELIN [Suspect]
     Active Substance: GOSERELIN
     Indication: Adenomyosis
     Dosage: UNK
     Route: 065
  2. ZOLADEX [Suspect]
     Active Substance: GOSERELIN ACETATE
     Indication: Adenomyosis
     Dosage: UNK
     Route: 065

REACTIONS (3)
  - Polycystic ovarian syndrome [Unknown]
  - Amenorrhoea [Unknown]
  - Drug ineffective [Unknown]
